FAERS Safety Report 18669880 (Version 1)
Quarter: 2020Q4

REPORT INFORMATION
  Report Type: Spontaneous
  Country: GR (occurrence: GR)
  Receive Date: 20201228
  Receipt Date: 20201228
  Transmission Date: 20210114
  Serious: Yes (Life-Threatening, Other)
  Sender: FDA-Public Use
  Company Number: GR-PFIZER INC-2020509605

PATIENT
  Age: 52 Year
  Sex: Female
  Weight: 85 kg

DRUGS (4)
  1. CIMZIA [Suspect]
     Active Substance: CERTOLIZUMAB PEGOL
     Indication: PSORIATIC ARTHROPATHY
     Dosage: 200 MG, FREQ:2 WK;
     Route: 058
     Dates: start: 20161129, end: 20200201
  2. PREZOLON [Concomitant]
     Active Substance: PREDNISOLONE
     Indication: PSORIATIC ARTHROPATHY
     Dosage: 5-15 MG, 1X/DAY
     Route: 048
     Dates: start: 2014, end: 20201117
  3. MEDROL [Concomitant]
     Active Substance: METHYLPREDNISOLONE
     Indication: PSORIATIC ARTHROPATHY
     Dosage: 4-12MG, 1X/DAY
     Route: 048
     Dates: start: 2014, end: 20201117
  4. METHOTREXATE SODIUM. [Suspect]
     Active Substance: METHOTREXATE SODIUM
     Indication: PSORIATIC ARTHROPATHY
     Dosage: 15 MG, WEEKLY
     Route: 048
     Dates: start: 20151017

REACTIONS (2)
  - Off label use [Unknown]
  - Breast cancer [Unknown]

NARRATIVE: CASE EVENT DATE: 20151017
